FAERS Safety Report 7394861-4 (Version None)
Quarter: 2011Q2

REPORT INFORMATION
  Report Type: 
  Country: None (occurrence: None)
  Receive Date: 20110405
  Receipt Date: 20110329
  Transmission Date: 20111010
  Serious: Yes (Other)
  Sender: FDA-Public Use
  Company Number: A0920442A

PATIENT
  Sex: Male

DRUGS (2)
  1. METFORMIN [Suspect]
     Dates: start: 20090101
  2. AVANDAMET [Suspect]
     Dates: start: 20080801, end: 20090101

REACTIONS (1)
  - MYOCARDIAL INFARCTION [None]
